FAERS Safety Report 15857815 (Version 2)
Quarter: 2019Q1

REPORT INFORMATION
  Report Type: Spontaneous
  Country: US (occurrence: US)
  Receive Date: 20190123
  Receipt Date: 20190228
  Transmission Date: 20190417
  Serious: Yes (Other)
  Sender: FDA-Public Use
  Company Number: US-PFIZER INC-2019024987

PATIENT
  Age: 68 Year
  Sex: Female
  Weight: 69 kg

DRUGS (10)
  1. VERAPAMIL [Concomitant]
     Active Substance: VERAPAMIL HYDROCHLORIDE
     Indication: MIGRAINE
     Dosage: 180 MG, DAILY
     Dates: start: 1995
  2. FENTANYL. [Suspect]
     Active Substance: FENTANYL
     Indication: NEURALGIA
     Dosage: 25 UG, UNK (CHANGED EVERY 3 DAYS)
     Route: 062
     Dates: start: 2005
  3. LEVOTHYROXINE. [Concomitant]
     Active Substance: LEVOTHYROXINE
     Indication: THYROID DISORDER
     Dosage: 81 UG, 1X/DAY
     Route: 048
  4. MONTELUKAST [Concomitant]
     Active Substance: MONTELUKAST SODIUM
     Indication: ASTHMA
     Dosage: UNK
     Dates: start: 2004
  5. SIMVASTATIN. [Concomitant]
     Active Substance: SIMVASTATIN
     Indication: BLOOD CHOLESTEROL INCREASED
     Dosage: UNK
     Dates: start: 2000
  6. OXYCONTIN [Concomitant]
     Active Substance: OXYCODONE HYDROCHLORIDE
     Dosage: UNK
     Dates: start: 2005
  7. CYMBALTA [Suspect]
     Active Substance: DULOXETINE HYDROCHLORIDE
     Indication: NEURALGIA
     Dosage: 200 MG, 1X/DAY (TAKEN BY MOUTH ONCE DAILY IN THE EVENING)
     Route: 048
     Dates: start: 2005
  8. LYRICA [Suspect]
     Active Substance: PREGABALIN
     Indication: NEURALGIA
     Dosage: 100 MG, 1X/DAY
     Route: 048
     Dates: start: 2005
  9. LYRICA [Suspect]
     Active Substance: PREGABALIN
     Dosage: 100 MG, 2X/DAY
     Route: 048
  10. MONTELUKAST [Concomitant]
     Active Substance: MONTELUKAST SODIUM
     Indication: BRONCHITIS

REACTIONS (15)
  - Muscle spasms [Not Recovered/Not Resolved]
  - Arthralgia [Not Recovered/Not Resolved]
  - Blood calcium decreased [Unknown]
  - Arthritis [Unknown]
  - Ankle fracture [Unknown]
  - Drug effect incomplete [Unknown]
  - Hypoacusis [Unknown]
  - Aortic valve prolapse [Not Recovered/Not Resolved]
  - Vitamin D decreased [Recovering/Resolving]
  - Atrial fibrillation [Recovering/Resolving]
  - Restless legs syndrome [Not Recovered/Not Resolved]
  - Blood magnesium decreased [Recovering/Resolving]
  - Chondropathy [Not Recovered/Not Resolved]
  - Varicose vein [Unknown]
  - Fall [Unknown]

NARRATIVE: CASE EVENT DATE: 2011
